FAERS Safety Report 10168097 (Version 1)
Quarter: 2014Q2

REPORT INFORMATION
  Report Type: Spontaneous
  Country: JP (occurrence: JP)
  Receive Date: 20140512
  Receipt Date: 20140512
  Transmission Date: 20141212
  Serious: Yes (Death)
  Sender: FDA-Public Use
  Company Number: JP-BAXTER-2014BAX023309

PATIENT
  Sex: Male
  Weight: 60 kg

DRUGS (1)
  1. FEIBA FOR INJECTION 1000 [Suspect]
     Indication: FACTOR VIII DEFICIENCY
     Route: 042
     Dates: start: 20140405, end: 20140407

REACTIONS (1)
  - Death [Fatal]
